FAERS Safety Report 9303051 (Version 4)
Quarter: 2013Q3

REPORT INFORMATION
  Report Type: Report from Study
  Country: GB (occurrence: GB)
  Receive Date: 20130522
  Receipt Date: 20130701
  Transmission Date: 20140515
  Serious: Yes (Other)
  Sender: FDA-Public Use
  Company Number: GB-PFIZER INC-2013155012

PATIENT
  Age: 73 Year
  Sex: Female
  Weight: 66.6 kg

DRUGS (10)
  1. PREGABALIN [Suspect]
     Indication: NEURALGIA
     Dosage: 600 MG, 1X/DAY
     Route: 048
     Dates: start: 20130417, end: 20130516
  2. AMLODIPINE [Concomitant]
     Indication: HYPERTENSION
     Dosage: 5MG TOTAL DAILY DOSE
     Route: 048
     Dates: start: 2010
  3. ATORVASTATIN [Concomitant]
     Indication: BLOOD CHOLESTEROL ABNORMAL
     Dosage: 20MG TOTAL DAILY DOSE
     Route: 048
     Dates: start: 2010
  4. BISOPROLOL [Concomitant]
     Indication: HYPERTENSION
     Dosage: 1.25MG TOTAL DAILY DOSE
     Route: 048
     Dates: start: 2010
  5. DULOXETINE [Concomitant]
     Indication: DEPRESSION
     Dosage: 40MG TOTAL DAILY DOSE
     Dates: start: 2011
  6. LEVOTHYROXINE [Concomitant]
     Indication: HYPOTHYROIDISM
     Dosage: 100MCG TOTAL DAILY DOSE
     Route: 048
     Dates: start: 2010
  7. OXYCODONE [Concomitant]
     Indication: PAIN
     Dosage: 20MG TOTAL DAILY DOSE
     Route: 048
     Dates: start: 20120107
  8. OXYNORM [Concomitant]
     Indication: PAIN
     Dosage: 10MG TOTAL DAILY DOSE
     Route: 048
     Dates: start: 20120107
  9. WARFARIN [Concomitant]
     Indication: ATRIAL FIBRILLATION
     Dosage: TITRATED
     Route: 048
     Dates: start: 20120107
  10. LIDOCAINE [Concomitant]
     Indication: PAIN
     Dosage: 5 %, UNK
     Dates: start: 20120107, end: 201304

REACTIONS (1)
  - Swollen tongue [Recovered/Resolved]
